FAERS Safety Report 9400159 (Version 1)
Quarter: 2013Q3

REPORT INFORMATION
  Report Type: Spontaneous
  Country: JP (occurrence: JP)
  Receive Date: 20130715
  Receipt Date: 20130715
  Transmission Date: 20140515
  Serious: Yes (Other)
  Sender: FDA-Public Use
  Company Number: JP-PFIZER INC-2013205185

PATIENT
  Age: 60 Year
  Sex: Female

DRUGS (2)
  1. ZOSYN [Suspect]
     Indication: PNEUMONIA
     Dosage: 4.5 G, 3X/DAY
     Route: 041
     Dates: start: 20100803, end: 20100816
  2. CORTRIL [Concomitant]
     Dosage: 20-40 MG/DAY
     Route: 048
     Dates: start: 20100803

REACTIONS (1)
  - Stress cardiomyopathy [Recovered/Resolved]
